FAERS Safety Report 19784303 (Version 1)
Quarter: 2021Q3

REPORT INFORMATION
  Report Type: Spontaneous
  Country: US (occurrence: US)
  Receive Date: 20210903
  Receipt Date: 20210903
  Transmission Date: 20211014
  Serious: Yes (Other)
  Sender: FDA-Public Use
  Company Number: None

PATIENT
  Age: 52 Year
  Sex: Male
  Weight: 103.5 kg

DRUGS (5)
  1. IPRATROPIUM BROMIDE NASAL SRAY [Concomitant]
     Dates: start: 20190516
  2. REGEN?COV [Suspect]
     Active Substance: CASIRIVIMAB\IMDEVIMAB
     Indication: COVID-19
     Dosage: ?          OTHER FREQUENCY:ONCE;?
     Route: 041
     Dates: start: 20210831, end: 20210831
  3. ALBUTEROL INHALER [Concomitant]
     Active Substance: ALBUTEROL
     Dates: start: 20160404
  4. MONTELUKAST [Concomitant]
     Active Substance: MONTELUKAST SODIUM
     Dates: start: 20210526
  5. AZELASTINE NASAL SPRAY [Concomitant]
     Active Substance: AZELASTINE
     Dates: start: 20210516

REACTIONS (5)
  - Oropharyngeal pain [None]
  - Pneumonitis [None]
  - Pulmonary mass [None]
  - Pneumonia viral [None]
  - Chest discomfort [None]

NARRATIVE: CASE EVENT DATE: 20210831
